FAERS Safety Report 5859178-5 (Version None)
Quarter: 2008Q3

REPORT INFORMATION
  Report Type: 
  Country: None (occurrence: None)
  Receive Date: 20080827
  Receipt Date: 20080815
  Transmission Date: 20090109
  Serious: Yes (Hospitalization)
  Sender: FDA-Public Use
  Company Number: US-TYCO HEALTHCARE/MALLINCKRODT-T200801353

PATIENT

DRUGS (1)
  1. OPTIRAY 300 [Suspect]
     Indication: UROGRAM
     Dosage: UNK, SINGLE

REACTIONS (4)
  - COUGH [None]
  - PULMONARY OEDEMA [None]
  - RESPIRATORY ARREST [None]
  - RESPIRATORY DISTRESS [None]
